FAERS Safety Report 17240258 (Version 1)
Quarter: 2020Q1

REPORT INFORMATION
  Report Type: Report from Study
  Country: US (occurrence: US)
  Receive Date: 20200107
  Receipt Date: 20200107
  Transmission Date: 20200409
  Serious: Yes (Hospitalization)
  Sender: FDA-Public Use
  Company Number: US-ROCHE-2378619

PATIENT
  Sex: Male

DRUGS (1)
  1. PULMOZYME [Suspect]
     Active Substance: DORNASE ALFA
     Indication: LUNG TRANSPLANT
     Dosage: NEBULIZE THE CONTENTS OF 1 VIAL(S) 2.5MG INTO THE LUNGS DAILY
     Route: 065

REACTIONS (3)
  - Off label use [Unknown]
  - Pleural effusion [Unknown]
  - Intentional product use issue [Unknown]
